FAERS Safety Report 7668112-7 (Version None)
Quarter: 2011Q3

REPORT INFORMATION
  Report Type: 
  Country: None (occurrence: None)
  Receive Date: 20110808
  Receipt Date: 20110729
  Transmission Date: 20111222
  Serious: Yes (Other)
  Sender: FDA-Public Use
  Company Number: PHHY2010JP24899

PATIENT
  Sex: Male
  Weight: 62 kg

DRUGS (30)
  1. ONCOVIN [Suspect]
     Dosage: 2 MG
     Route: 042
     Dates: start: 20070811, end: 20070811
  2. CYTARABINE [Concomitant]
     Dosage: 6800 MG
     Route: 042
  3. LEVOFLOXACIN [Concomitant]
     Indication: ACUTE LYMPHOCYTIC LEUKAEMIA
     Dosage: 300MG
     Route: 048
  4. CYCLOPHOSPHAMIDE [Concomitant]
     Indication: ACUTE LYMPHOCYTIC LEUKAEMIA
     Dosage: 2100 MG
     Route: 042
     Dates: start: 20070804, end: 20070804
  5. METHOTREXATE [Concomitant]
     Dosage: 15 MG
     Route: 037
  6. METHOTREXATE [Concomitant]
     Dosage: 1610
     Route: 042
  7. ZANTAC [Concomitant]
     Indication: PROPHYLAXIS
     Dosage: 300 MG
     Route: 048
     Dates: start: 20070811
  8. SULFAMETHOXAZOLE [Concomitant]
     Indication: PROPHYLAXIS
     Dosage: UNK UKN, UNK
     Route: 048
     Dates: start: 20070811
  9. MAXIPIME [Concomitant]
     Indication: PROPHYLAXIS
     Dosage: 4 G
     Route: 042
     Dates: start: 20070820, end: 20070827
  10. IMATINIB MESYLATE [Suspect]
     Dosage: 600 MG DAILY
     Route: 048
     Dates: start: 20071211, end: 20080114
  11. METHOTREXATE [Concomitant]
     Dosage: 15 MG
     Route: 037
     Dates: end: 20071211
  12. DECADRON PHOSPHATE [Concomitant]
     Indication: ACUTE LYMPHOCYTIC LEUKAEMIA
     Dosage: 4 MG
     Route: 037
     Dates: start: 20071026
  13. LEVOFLOXACIN [Concomitant]
     Indication: PROPHYLAXIS
     Dosage: 300 MG
     Route: 048
     Dates: start: 20070811
  14. METHYCOBAL [Concomitant]
     Indication: PROPHYLAXIS
     Dosage: 1500 MG
     Route: 048
     Dates: start: 20070811
  15. IMATINIB MESYLATE [Suspect]
     Dosage: 600 MG DAILY
     Route: 048
     Dates: start: 20071026, end: 20071122
  16. ONCOVIN [Suspect]
     Indication: ACUTE LYMPHOCYTIC LEUKAEMIA
     Dosage: 2 MG
     Route: 042
     Dates: start: 20070804, end: 20070804
  17. FLUCONAZOLE [Concomitant]
     Indication: PROPHYLAXIS
     Dosage: 200 MG
     Route: 048
     Dates: start: 20070811
  18. FLUCONAZOLE [Concomitant]
     Dosage: 200 MG
     Route: 048
  19. IMATINIB MESYLATE [Suspect]
     Indication: ACUTE LYMPHOCYTIC LEUKAEMIA
     Dosage: 600 MG DAILY
     Route: 048
     Dates: start: 20070811, end: 20071005
  20. ONCOVIN [Suspect]
     Dosage: 2 MG
     Route: 042
     Dates: start: 20070818, end: 20070818
  21. CYTARABINE [Concomitant]
     Indication: ACUTE LYMPHOCYTIC LEUKAEMIA
     Dosage: 6800 MG
     Route: 042
     Dates: start: 20071006
  22. DECADRON PHOSPHATE [Concomitant]
     Dosage: 4 MG
     Route: 037
     Dates: end: 20071211
  23. PREDNISOLONE [Concomitant]
     Indication: ACUTE LYMPHOCYTIC LEUKAEMIA
     Dosage: 10 DF, UNK
     Route: 048
     Dates: start: 20070804, end: 20070824
  24. METHOTREXATE [Concomitant]
     Indication: ACUTE LYMPHOCYTIC LEUKAEMIA
     Dosage: 1670 MG
     Route: 042
     Dates: start: 20071005
  25. FUNGUARD [Concomitant]
     Indication: PROPHYLAXIS
     Dosage: 150 MG
     Route: 042
     Dates: start: 20070820, end: 20070827
  26. CYTARABINE [Concomitant]
     Dosage: 40 MG
     Route: 037
  27. NEUTROGIN [Concomitant]
     Indication: PROPHYLAXIS
     Dosage: 300 UG
     Route: 042
     Dates: start: 20070820, end: 20070827
  28. DAUNORUBICIN HCL [Concomitant]
     Indication: ACUTE LYMPHOCYTIC LEUKAEMIA
     Dosage: 110 MG, UNK
     Route: 042
     Dates: start: 20070804, end: 20070806
  29. CYTARABINE [Concomitant]
     Dosage: 40 MG
     Route: 037
     Dates: end: 20071211
  30. ALOSITOL [Concomitant]
     Indication: PROPHYLAXIS
     Dosage: 300 MG
     Route: 048
     Dates: start: 20070811, end: 20070818

REACTIONS (4)
  - PERICARDIAL EFFUSION [None]
  - PLATELET COUNT DECREASED [None]
  - ILEUS PARALYTIC [None]
  - AGRANULOCYTOSIS [None]
